FAERS Safety Report 5482439-9 (Version None)
Quarter: 2007Q4

REPORT INFORMATION
  Report Type: 
  Country: None (occurrence: None)
  Receive Date: 20071011
  Receipt Date: 20071002
  Transmission Date: 20080405
  Serious: Yes (Other)
  Sender: FDA-Public Use
  Company Number: DE-JNJFOC-20071001514

PATIENT
  Age: 17 Year
  Sex: Male

DRUGS (1)
  1. INFLIXIMAB [Suspect]
     Indication: CROHN'S DISEASE
     Route: 042

REACTIONS (4)
  - ABSCESS LIMB [None]
  - ACNE [None]
  - SPLINTER [None]
  - SUBCUTANEOUS ABSCESS [None]
